FAERS Safety Report 8165462-5 (Version None)
Quarter: 2012Q1

REPORT INFORMATION
  Report Type: 
  Country: None (occurrence: None)
  Receive Date: 20120227
  Receipt Date: 20110215
  Transmission Date: 20120608
  Serious: No
  Sender: FDA-Public Use
  Company Number: US-MYLANLABS-2011S1003190

PATIENT
  Age: 71 Year
  Sex: Female

DRUGS (5)
  1. METOPROLOL TARTRATE [Suspect]
     Route: 048
     Dates: start: 20110211
  2. METOPROLOL TARTRATE [Suspect]
     Indication: BLOOD PRESSURE INCREASED
     Route: 048
     Dates: start: 20100101, end: 20110208
  3. NORVASC [Concomitant]
     Indication: BLOOD PRESSURE
     Route: 048
  4. LISINOPRIL [Concomitant]
     Indication: BLOOD PRESSURE
     Route: 048
  5. METOPROLOL TARTRATE [Suspect]
     Indication: BLOOD PRESSURE
     Route: 048
     Dates: start: 20100101, end: 20110210

REACTIONS (5)
  - DRUG EFFECT DECREASED [None]
  - BLOOD PRESSURE INCREASED [None]
  - MEDICATION RESIDUE [None]
  - BLOOD GLUCOSE INCREASED [None]
  - URINARY TRACT INFECTION [None]
